FAERS Safety Report 8507712-9 (Version None)
Quarter: 2012Q2

REPORT INFORMATION
  Report Type: 
  Country: None (occurrence: None)
  Receive Date: 20120405
  Receipt Date: 20090727
  Transmission Date: 20120825
  Serious: Yes (Other)
  Sender: FDA-Public Use
  Company Number: PHEH2009US08763

PATIENT
  Sex: Male

DRUGS (1)
  1. RECLAST [Suspect]
     Dosage: INFUSION

REACTIONS (4)
  - MUSCULOSKELETAL PAIN [None]
  - FATIGUE [None]
  - MULTIPLE FRACTURES [None]
  - ARTHRALGIA [None]
